FAERS Safety Report 5055234-2 (Version None)
Quarter: 2006Q3

REPORT INFORMATION
  Report Type: 
  Country: None (occurrence: None)
  Receive Date: 20060714
  Receipt Date: 20060628
  Transmission Date: 20061208
  Serious: Yes (Life-Threatening, Hospitalization, Other)
  Sender: FDA-Public Use
  Company Number: 530#5#2006-00031

PATIENT
  Age: 77 Year
  Sex: Female

DRUGS (15)
  1. PROSTAVASIN-40UG (ALPROSTADIL (PAOD)) [Suspect]
     Indication: PERIPHERAL ISCHAEMIA
     Dosage: 2 X 40 MCG PER DAY; INTRAVENOUS DRIP
     Route: 041
     Dates: start: 20060516, end: 20060612
  2. KETOPROFEN 100MG, AMPOULES (KETOPROFEN) [Concomitant]
  3. PETHIDINE HYDROCHLORIDE 50 MG, AMPOULES [Concomitant]
  4. PETHIDINE HYDROCHLORIDE 100MG, AMPOULES [Concomitant]
  5. FUROSEMIDE [Concomitant]
  6. AMLODIPINE 5 MG, TABLETS [Concomitant]
  7. TICLOPIDINE 250MG, TABLETS [Concomitant]
  8. POTASSIUM CHLORIDE 750MG, TABLETS [Concomitant]
  9. RANITIDINE HYDROCHLORIDE 150MG, TABLETS [Concomitant]
  10. HEPARIN SODIUM 24000IU, AMPOULES [Concomitant]
  11. RANTIDINE 100MG, AMPOULES [Concomitant]
  12. OMEPRAZOLE 40MG, AMPOULES [Concomitant]
  13. SODIUM CHLORIDE 0.9%, SOLUTION [Concomitant]
  14. ENOXAPARIN SODIUM 40MG, AMPOULES (HEPARIN-FRACTION, SODIUM SALT) [Concomitant]
  15. FUROSEMIDE 40MG, AMPOULES [Concomitant]

REACTIONS (8)
  - ANAESTHETIC COMPLICATION PULMONARY [None]
  - BRONCHOPNEUMONIA [None]
  - CHEST PAIN [None]
  - HAEMATEMESIS [None]
  - LEG AMPUTATION [None]
  - NECROSIS ISCHAEMIC [None]
  - RESPIRATORY FAILURE [None]
  - SKIN ULCER [None]
